FAERS Safety Report 10697093 (Version 1)
Quarter: 2015Q1

REPORT INFORMATION
  Report Type: Spontaneous
  Country: US (occurrence: US)
  Receive Date: 20150108
  Receipt Date: 20150108
  Transmission Date: 20150721
  Serious: Yes (Other)
  Sender: FDA-Public Use
  Company Number: US-BRISTOL-MYERS SQUIBB COMPANY-BMS-2014-005948

PATIENT
  Sex: Female

DRUGS (13)
  1. COUMADIN [Suspect]
     Active Substance: WARFARIN SODIUM
     Indication: PRODUCT USED FOR UNKNOWN INDICATION
     Dosage: 2.5 MG, QD
     Route: 048
     Dates: start: 20140606
  2. OXYBUTIN [Concomitant]
     Active Substance: OXYBUTYNIN
  3. PROVIGIL [Concomitant]
     Active Substance: MODAFINIL
  4. ATENOLOL. [Concomitant]
     Active Substance: ATENOLOL
  5. CELEBREX [Concomitant]
     Active Substance: CELECOXIB
  6. ANTIVERT                           /00007101/ [Concomitant]
  7. LORAZEPAM. [Concomitant]
     Active Substance: LORAZEPAM
  8. VITAMIN D                          /00107901/ [Concomitant]
     Active Substance: ERGOCALCIFEROL
  9. LASIX [Concomitant]
     Active Substance: FUROSEMIDE
  10. WELLBUTRIN [Concomitant]
     Active Substance: BUPROPION HYDROCHLORIDE
  11. KLOR-CON [Concomitant]
     Active Substance: POTASSIUM CHLORIDE
  12. NEXIUM [Concomitant]
     Active Substance: ESOMEPRAZOLE MAGNESIUM
  13. OXYCODONE AND ACETAMINOPHEN [Concomitant]
     Active Substance: ACETAMINOPHEN\OXYCODONE\OXYCODONE HYDROCHLORIDE

REACTIONS (1)
  - Uterine cancer [Unknown]
